FAERS Safety Report 10264173 (Version 1)
Quarter: 2014Q2

REPORT INFORMATION
  Report Type: Spontaneous
  Country: GB (occurrence: None)
  Receive Date: 20140624
  Receipt Date: 20140624
  Transmission Date: 20141212
  Serious: Yes (Other)
  Sender: FDA-Public Use
  Company Number: AUR-APL-2014-06590

PATIENT
  Age: 49 Year
  Sex: Female
  Weight: 61.2 kg

DRUGS (7)
  1. CLARITHROMYCIN [Suspect]
     Indication: LOWER RESPIRATORY TRACT INFECTION
     Route: 048
     Dates: start: 20140504, end: 20140509
  2. PREDNISONE (PREDNISONE) [Suspect]
     Indication: ASPIRIN-EXACERBATED RESPIRATORY DISEASE
     Route: 048
     Dates: start: 20140504, end: 20140504
  3. AMLODIPINE (AMLODIPINE) [Concomitant]
  4. DOSULEPIN (DOSULEPIN) [Concomitant]
  5. INDAPAMIDE (INDAPAMIDE) [Concomitant]
  6. RAMIPRIL (RAMIPRIL) [Concomitant]
  7. VENLAFAXINE (VENLAFAXINE) [Concomitant]

REACTIONS (9)
  - Agitation [None]
  - Palpitations [None]
  - Insomnia [None]
  - Fatigue [None]
  - Headache [None]
  - Tearfulness [None]
  - Restlessness [None]
  - Withdrawal syndrome [None]
  - Labelled drug-drug interaction medication error [None]
